FAERS Safety Report 18985691 (Version 1)
Quarter: 2021Q1

REPORT INFORMATION
  Report Type: Spontaneous
  Country: DE (occurrence: DE)
  Receive Date: 20210309
  Receipt Date: 20210309
  Transmission Date: 20210420
  Serious: Yes (Hospitalization, Other)
  Sender: FDA-Public Use
  Company Number: DE-009507513-2012DEU008893

PATIENT
  Sex: Male
  Weight: 79 kg

DRUGS (7)
  1. PEMBROLIZUMAB. [Suspect]
     Active Substance: PEMBROLIZUMAB
     Indication: SMALL INTESTINE ADENOCARCINOMA
     Dosage: 200 MILLIGRAM, EVERY 21 DAYS (Q21)
     Dates: start: 201911, end: 202011
  2. TILIDIN [Concomitant]
     Active Substance: NALOXONE HYDROCHLORIDE\TILIDINE HYDROCHLORIDE
     Dosage: 1 DOSAGE FORM, TWICE DAILY
  3. MAGNESIUM (UNSPECIFIED) [Concomitant]
     Active Substance: MAGNESIUM
     Dosage: 300 MILLIGRAM, ONCE DAILY
  4. PANTOPRAZOLE [Concomitant]
     Active Substance: PANTOPRAZOLE
     Indication: PROPHYLAXIS
     Dosage: 40 MILLIGRAM, DAILY
  5. ASS 100 [Concomitant]
     Active Substance: ASPIRIN
     Indication: PROSTHETIC VESSEL IMPLANTATION
     Dosage: 1 ONCE DAILY
  6. FERRLECIT [Concomitant]
     Active Substance: SODIUM FERRIC GLUCONATE COMPLEX
     Dosage: UNK
     Route: 048
     Dates: end: 20210115
  7. APIXABAN [Concomitant]
     Active Substance: APIXABAN
     Indication: PROSTHETIC VESSEL IMPLANTATION
     Dosage: UNK

REACTIONS (4)
  - Product use in unapproved indication [Unknown]
  - Immune-mediated arthritis [Not Recovered/Not Resolved]
  - Urinary tract infection [Recovered/Resolved]
  - Glaucoma [Unknown]

NARRATIVE: CASE EVENT DATE: 201911
